FAERS Safety Report 18379139 (Version 1)
Quarter: 2020Q4

REPORT INFORMATION
  Report Type: Spontaneous
  Country: FI (occurrence: FI)
  Receive Date: 20201014
  Receipt Date: 20201014
  Transmission Date: 20210114
  Serious: Yes (Hospitalization)
  Sender: FDA-Public Use
  Company Number: FI-AMGEN-FINSP2020163969

PATIENT
  Age: 22 Year
  Sex: Female

DRUGS (6)
  1. TREXAN [METHOTREXATE SODIUM] [Concomitant]
     Active Substance: METHOTREXATE SODIUM
     Dosage: 10 MILLIGRAM, QWK
     Route: 048
  2. RISPERIDON RATIOPHARM [Concomitant]
     Dosage: 0.5 MILLIGRAM, QD
     Route: 048
  3. SPARTOFER [Concomitant]
     Dosage: 100 MILLIGRAM, QD
     Route: 048
  4. AMGEVITA [Suspect]
     Active Substance: ADALIMUMAB
     Indication: JUVENILE IDIOPATHIC ARTHRITIS
     Dosage: 40 MILLIGRAM, QMO
     Route: 058
     Dates: start: 20200722, end: 20200722
  5. ESCITALOPRAM ORION [Concomitant]
     Active Substance: ESCITALOPRAM OXALATE
     Dosage: 20 MILLIGRAM, QD
     Route: 048
  6. FOLVITE [FOLIC ACID] [Concomitant]
     Dosage: 1 MILLIGRAM, QWK
     Route: 048

REACTIONS (3)
  - Gait inability [Not Recovered/Not Resolved]
  - Nerve compression [Not Recovered/Not Resolved]
  - Hypoaesthesia [Not Recovered/Not Resolved]

NARRATIVE: CASE EVENT DATE: 202007
